FAERS Safety Report 13133218 (Version 3)
Quarter: 2017Q1

REPORT INFORMATION
  Report Type: Report from Study
  Country: MY (occurrence: MY)
  Receive Date: 20170120
  Receipt Date: 20170209
  Transmission Date: 20170428
  Serious: Yes (Death, Life-Threatening)
  Sender: FDA-Public Use
  Company Number: PHHY2016MY126842

PATIENT
  Age: 54 Year
  Sex: Female

DRUGS (3)
  1. EXEMESTANE. [Concomitant]
     Active Substance: EXEMESTANE
     Indication: PRODUCT USED FOR UNKNOWN INDICATION
     Dosage: 25 MG, QD
     Route: 065
  2. AFINITOR [Suspect]
     Active Substance: EVEROLIMUS
     Indication: BREAST CANCER METASTATIC
     Dosage: 10 MG, UNK
     Route: 048
     Dates: start: 20160922, end: 20161205
  3. AMLODIPINE [Concomitant]
     Active Substance: AMLODIPINE BESYLATE
     Indication: PRODUCT USED FOR UNKNOWN INDICATION
     Dosage: 5 MG, QD
     Route: 065

REACTIONS (24)
  - Dyspnoea [Fatal]
  - Fatigue [Recovering/Resolving]
  - Gingival ulceration [Recovering/Resolving]
  - Erythema [Recovering/Resolving]
  - Tachycardia [Fatal]
  - Wound [Recovering/Resolving]
  - Wound haemorrhage [Recovering/Resolving]
  - Rash generalised [Recovering/Resolving]
  - Dry skin [Recovering/Resolving]
  - Oral pain [Recovering/Resolving]
  - Decreased appetite [Recovering/Resolving]
  - Burning sensation [Recovering/Resolving]
  - Cough [Recovering/Resolving]
  - Pneumonia [Fatal]
  - Atrial fibrillation [Fatal]
  - Depression [Recovering/Resolving]
  - Hypoaesthesia [Recovering/Resolving]
  - Dizziness [Recovering/Resolving]
  - Mouth ulceration [Recovering/Resolving]
  - Blister [Recovering/Resolving]
  - Lymphoedema [Recovering/Resolving]
  - Pruritus [Recovering/Resolving]
  - Feeling abnormal [Recovering/Resolving]
  - Blood potassium decreased [Recovering/Resolving]

NARRATIVE: CASE EVENT DATE: 20161207
